FAERS Safety Report 5812554-9 (Version None)
Quarter: 2008Q3

REPORT INFORMATION
  Report Type: 
  Country: None (occurrence: None)
  Receive Date: 20080711
  Receipt Date: 20080701
  Transmission Date: 20090109
  Serious: Yes (Death, Other)
  Sender: FDA-Public Use
  Company Number: S07-GER-06408-01

PATIENT
  Age: 83 Year
  Sex: Female
  Weight: 51 kg

DRUGS (24)
  1. CITALOPRAM HYDROBROMIDE [Suspect]
     Indication: DEPRESSION
     Dosage: 20 MG BID PO
     Route: 048
     Dates: start: 20060615, end: 20060617
  2. CITALOPRAM HYDROBROMIDE [Suspect]
     Indication: DEPRESSION
     Dosage: 10 MG ONCE PO
     Route: 048
     Dates: start: 20060519, end: 20060519
  3. CITALOPRAM HYDROBROMIDE [Suspect]
     Indication: DEPRESSION
     Dosage: 20 MG QD PO
     Route: 048
     Dates: start: 20060520, end: 20060614
  4. DOXEPIN HCL [Concomitant]
  5. INNOHEP MULTI (HEPARIN-FRACTION, SODIUM SALT) [Concomitant]
  6. RAMIPRIL [Concomitant]
  7. NORVASC [Concomitant]
  8. CARBIMAZOL (CARBIMAZOLE) [Concomitant]
  9. RANITIDINE HCL [Concomitant]
  10. AMBROXOL [Concomitant]
  11. SALT (SODIUM CHLORIDE) [Concomitant]
  12. ESPUMISAN (DIMETICONE) [Concomitant]
  13. ERYTHROCYTES CONCENTRATED    (RED BLOOD CELLS, CONCENTRATED) [Concomitant]
  14. TAZOBACTAM [Concomitant]
  15. ZINACEF [Concomitant]
  16. AMPHO-MORONAL (AMPHOTERICIN B) [Concomitant]
  17. VALPROATE SODIUM [Concomitant]
  18. CEFTRIAXON (CEFTRIAXONE) [Concomitant]
  19. METOPROLOL SUCCINATE [Concomitant]
  20. ESIDRIX [Concomitant]
  21. NEXIUM [Concomitant]
  22. METOCLOPRAMIDE HCL [Concomitant]
  23. FRAGMIN [Concomitant]
  24. STREPTOKINASE [Concomitant]

REACTIONS (9)
  - ANTIDEPRESSANT DRUG LEVEL ABOVE THERAPEUTIC [None]
  - CARDIAC ARREST [None]
  - CARDIOVASCULAR DISORDER [None]
  - EMPHYSEMA [None]
  - GENERAL PHYSICAL HEALTH DETERIORATION [None]
  - LIVER DISORDER [None]
  - MITRAL VALVE STENOSIS [None]
  - NO THERAPEUTIC RESPONSE [None]
  - THERAPEUTIC AGENT TOXICITY [None]
